FAERS Safety Report 16250426 (Version 2)
Quarter: 2019Q3

REPORT INFORMATION
  Report Type: Report from Study
  Country: US (occurrence: US)
  Receive Date: 20190429
  Receipt Date: 20190920
  Transmission Date: 20191004
  Serious: Yes (Hospitalization)
  Sender: FDA-Public Use
  Company Number: US-BIOVITRUM-2019US0892

PATIENT
  Age: 12 Year
  Sex: Male

DRUGS (8)
  1. GENTAMICIN. [Concomitant]
     Active Substance: GENTAMICIN
  2. KINERET [Suspect]
     Active Substance: ANAKINRA
     Indication: DEFICIENCY OF THE INTERLEUKIN-1 RECEPTOR ANTAGONIST
     Dosage: DOSE AT ONSET OF EVENT?5.6 MG/KG/DAY
     Route: 058
     Dates: start: 20080730
  3. VANCOMYCIN [Concomitant]
     Active Substance: VANCOMYCIN
  4. CODEINE [Concomitant]
     Active Substance: CODEINE
  5. DEXTROPROPOXYPHENE [Concomitant]
     Active Substance: PROPOXYPHENE HYDROCHLORIDE
  6. MOTRIN [Concomitant]
     Active Substance: IBUPROFEN
  7. AMPICILLIN [Concomitant]
     Active Substance: AMPICILLIN
  8. INTERFERON GAMMA NOS [Concomitant]
     Active Substance: INTERFERON GAMMA

REACTIONS (1)
  - Subarachnoid haemorrhage [Unknown]

NARRATIVE: CASE EVENT DATE: 20110308
